FAERS Safety Report 4900683-3 (Version None)
Quarter: 2005Q4

REPORT INFORMATION
  Report Type: 
  Country: None (occurrence: None)
  Receive Date: 20051221
  Receipt Date: 20051017
  Transmission Date: 20060501
  Serious: No
  Sender: FDA-Public Use
  Company Number: US-YAMANOUCHI-YPA20050538

PATIENT
  Age: 83 Year
  Sex: Female
  Weight: 62.5964 kg

DRUGS (5)
  1. VESICARE [Suspect]
     Indication: HYPERTONIC BLADDER
     Dosage: 5 MG QD PO
     Route: 048
     Dates: start: 20051001
  2. LISINOPRIL [Concomitant]
  3. ARICEPT [Concomitant]
  4. DILTIAZEM HCL [Concomitant]
  5. COUMADIN [Concomitant]

REACTIONS (1)
  - COUGH [None]
